FAERS Safety Report 15428230 (Version 1)
Quarter: 2018Q3

REPORT INFORMATION
  Report Type: Spontaneous
  Country: US (occurrence: US)
  Receive Date: 20180926
  Receipt Date: 20180926
  Transmission Date: 20181010
  Serious: No
  Sender: FDA-Public Use
  Company Number: US-009507513-1809USA004424

PATIENT
  Sex: Female

DRUGS (2)
  1. NUVARING [Suspect]
     Active Substance: ETHINYL ESTRADIOL\ETONOGESTREL
     Dosage: 0.015/0.12 MG QM
     Route: 067
     Dates: start: 20180802
  2. NUVARING [Suspect]
     Active Substance: ETHINYL ESTRADIOL\ETONOGESTREL
     Dosage: 1 RING, QM
     Route: 067

REACTIONS (3)
  - Device breakage [Unknown]
  - Incorrect dose administered [Unknown]
  - No adverse event [Unknown]

NARRATIVE: CASE EVENT DATE: 20180802
